FAERS Safety Report 9187367 (Version 2)
Quarter: 2013Q1

REPORT INFORMATION
  Report Type: Spontaneous
  Country: US (occurrence: US)
  Receive Date: 20130325
  Receipt Date: 20130325
  Transmission Date: 20140127
  Serious: Yes (Other)
  Sender: FDA-Public Use
  Company Number: US-RB-046518-12

PATIENT
  Age: 45 Year
  Sex: Female

DRUGS (2)
  1. CEPACOL [Suspect]
     Indication: OROPHARYNGEAL PAIN
     Dosage: PATIENT TOOK 1 LOZENGE ON 12-OCT-2012
     Route: 048
     Dates: start: 20121012
  2. CEPACOL [Suspect]

REACTIONS (3)
  - Dyspnoea [Recovered/Resolved]
  - Throat tightness [Recovered/Resolved]
  - Drug ineffective [Recovered/Resolved]
